FAERS Safety Report 9538694 (Version 1)
Quarter: 2013Q3

REPORT INFORMATION
  Report Type: Report from Study
  Country: US (occurrence: US)
  Receive Date: 20130920
  Receipt Date: 20130920
  Transmission Date: 20140515
  Serious: Yes (Hospitalization)
  Sender: FDA-Public Use
  Company Number: US-009507513-1309USA009204

PATIENT
  Age: 38 Year
  Sex: Male

DRUGS (8)
  1. VORINOSTAT [Suspect]
     Indication: GLIOBLASTOMA
     Dosage: 400 MG, QD, D1- D7 AND D15-D21
     Route: 048
     Dates: start: 20130129, end: 20130709
  2. BEVACIZUMAB [Suspect]
     Indication: GLIOBLASTOMA
     Dosage: 10 MG/KG, D1 AND D15
     Route: 042
     Dates: start: 20130129, end: 20130709
  3. ZOFRAN [Concomitant]
     Dosage: UNK
  4. BACTRIM [Concomitant]
     Dosage: UNK
  5. LISINOPRIL [Concomitant]
     Dosage: UNK
  6. XANAX [Concomitant]
     Dosage: UNK
  7. PRILOSEC [Concomitant]
     Dosage: UNK
  8. DEXAMETHASONE [Concomitant]
     Dosage: UNK

REACTIONS (1)
  - Non-cardiac chest pain [Unknown]
